FAERS Safety Report 26201551 (Version 1)
Quarter: 2025Q4

REPORT INFORMATION
  Report Type: Spontaneous
  Country: EU (occurrence: EU)
  Receive Date: 20251226
  Receipt Date: 20251226
  Transmission Date: 20260117
  Serious: Yes (Other)
  Sender: AUROBINDO
  Company Number: EU-MIBEB-20253502

PATIENT
  Age: 87 Year
  Sex: Male

DRUGS (2)
  1. PANTOPRAZOLE [Interacting]
     Active Substance: PANTOPRAZOLE
     Indication: Gastrooesophageal reflux disease
     Dosage: 20 MILLIGRAM, DAILY (20 MG DAILY ORALLY)
     Route: 061
  2. CEFPODOXIME [Interacting]
     Active Substance: CEFPODOXIME
     Indication: Urinary tract infection
     Dosage: 400 MILLIGRAM (400 MG ORALLY FOR 14 DAYS)
     Route: 061

REACTIONS (1)
  - Drug interaction [Unknown]
